FAERS Safety Report 25882954 (Version 1)
Quarter: 2025Q4

REPORT INFORMATION
  Report Type: Report from Study
  Country: JP (occurrence: JP)
  Receive Date: 20251006
  Receipt Date: 20251006
  Transmission Date: 20260117
  Serious: Yes (Other)
  Sender: ROCHE
  Company Number: JP-ROCHE-10000401966

PATIENT

DRUGS (2)
  1. ATEZOLIZUMAB [Suspect]
     Active Substance: ATEZOLIZUMAB
     Indication: Hepatocellular carcinoma
     Route: 042
  2. BEVACIZUMAB [Suspect]
     Active Substance: BEVACIZUMAB
     Indication: Hepatocellular carcinoma
     Route: 042

REACTIONS (12)
  - Proteinuria [Unknown]
  - Hypertension [Unknown]
  - Adrenal insufficiency [Unknown]
  - Gastrointestinal haemorrhage [Unknown]
  - Pyrexia [Unknown]
  - Interstitial lung disease [Unknown]
  - Hepatic function abnormal [Unknown]
  - Type 1 diabetes mellitus [Unknown]
  - Ascites [Unknown]
  - Decreased appetite [Unknown]
  - Hypothyroidism [Unknown]
  - Tumour rupture [Unknown]
